FAERS Safety Report 15220937 (Version 8)
Quarter: 2019Q1

REPORT INFORMATION
  Report Type: Report from Study
  Country: BR (occurrence: BR)
  Receive Date: 20180731
  Receipt Date: 20190131
  Transmission Date: 20190417
  Serious: Yes (Other)
  Sender: FDA-Public Use
  Company Number: PHHY2018BR056503

PATIENT
  Sex: Female
  Weight: 63 kg

DRUGS (5)
  1. COSENTYX [Suspect]
     Active Substance: SECUKINUMAB
     Dosage: 300 MG, QMO
     Route: 058
     Dates: start: 201802, end: 201806
  2. COSENTYX [Suspect]
     Active Substance: SECUKINUMAB
     Indication: PSORIATIC ARTHROPATHY
     Dosage: 300 MG, QW (ONCE A WEEK, FOR 5 WEEKS)
     Route: 058
  3. COSENTYX [Suspect]
     Active Substance: SECUKINUMAB
     Dosage: 300 MG, QMO
     Route: 058
     Dates: start: 20180112
  4. CIPROFIBRATE [Concomitant]
     Active Substance: CIPROFIBRATE
     Indication: BLOOD TRIGLYCERIDES ABNORMAL
     Dosage: 100 MG, QD (01 CAPSULE AFTER DINNER)
     Route: 048
  5. COSENTYX [Suspect]
     Active Substance: SECUKINUMAB
     Dosage: 300 MG, QMO
     Route: 058
     Dates: start: 20181015

REACTIONS (17)
  - Psoriasis [Not Recovered/Not Resolved]
  - Hypersensitivity [Not Recovered/Not Resolved]
  - Abscess limb [Recovered/Resolved]
  - Erythema [Recovering/Resolving]
  - Diabetes mellitus [Not Recovered/Not Resolved]
  - Psoriatic arthropathy [Not Recovered/Not Resolved]
  - Skin fissures [Unknown]
  - Mass [Recovered/Resolved with Sequelae]
  - Macule [Not Recovered/Not Resolved]
  - Conjunctivitis [Recovered/Resolved]
  - Drug effect incomplete [Unknown]
  - Skin atrophy [Unknown]
  - Immune system disorder [Unknown]
  - Nasal crusting [Recovered/Resolved]
  - Injury [Not Recovered/Not Resolved]
  - Abdominal abscess [Recovered/Resolved]
  - Gastroenteritis [Recovered/Resolved]

NARRATIVE: CASE EVENT DATE: 2018
